FAERS Safety Report 9138041 (Version 1)
Quarter: 2013Q1

REPORT INFORMATION
  Report Type: Report from Study
  Country: US (occurrence: US)
  Receive Date: 20130304
  Receipt Date: 20130304
  Transmission Date: 20140127
  Serious: Yes (Other)
  Sender: FDA-Public Use
  Company Number: US-ABBOTT-13P-163-1053858-00

PATIENT
  Age: 18 Year
  Sex: Male

DRUGS (2)
  1. HUMIRA [Suspect]
     Indication: CROHN^S DISEASE
     Dates: start: 20121022
  2. 6-MP [Concomitant]
     Indication: CROHN^S DISEASE
     Dosage: DAILY

REACTIONS (2)
  - Gastrointestinal infection [Recovered/Resolved]
  - Gastrointestinal inflammation [Recovered/Resolved]
